FAERS Safety Report 19235707 (Version 1)
Quarter: 2021Q2

REPORT INFORMATION
  Report Type: Spontaneous
  Country: GB (occurrence: GB)
  Receive Date: 20210510
  Receipt Date: 20210510
  Transmission Date: 20210717
  Serious: Yes (Other)
  Sender: FDA-Public Use
  Company Number: GB-SUN PHARMACEUTICAL INDUSTRIES LTD-2021RR-295106

PATIENT
  Age: 84 Year
  Sex: Female

DRUGS (2)
  1. ANASTROZOLE. [Suspect]
     Active Substance: ANASTROZOLE
     Indication: PRODUCT USED FOR UNKNOWN INDICATION
     Dosage: UNK
     Route: 048
  2. GAVISCON [Concomitant]
     Active Substance: ALUMINUM HYDROXIDE\MAGNESIUM CARBONATE
     Indication: PRODUCT USED FOR UNKNOWN INDICATION
     Dosage: UNK
     Route: 065

REACTIONS (10)
  - Renal disorder [Unknown]
  - Liver disorder [Unknown]
  - Illness [Unknown]
  - Ageusia [Recovering/Resolving]
  - Skin ulcer [Unknown]
  - Haemorrhage [Unknown]
  - Peripheral swelling [Unknown]
  - Pruritus [Unknown]
  - Abdominal discomfort [Unknown]
  - Pain [Unknown]
